FAERS Safety Report 4579401-7 (Version None)
Quarter: 2005Q1

REPORT INFORMATION
  Report Type: 
  Country: None (occurrence: None)
  Receive Date: 20050210
  Receipt Date: 20050210
  Transmission Date: 20050727
  Serious: Yes (Hospitalization)
  Sender: FDA-Public Use
  Company Number: None

PATIENT
  Sex: Female
  Weight: 53.6 kg

DRUGS (5)
  1. FLUOROURACIL [Suspect]
     Dosage: 1000 MG/M2/DAY BY CONTINUOUS INFUSION ON DAYS 1-4 AND 29-32.
     Route: 042
     Dates: start: 20041206, end: 20050121
  2. MITOMYCIN-C BULK POWDER [Suspect]
     Dosage: 10 MG/M2 IV BOLUS ON DAYS 1 AND 29 (NOT TO EXCEED 20 MG PER COURSE)
     Route: 042
  3. RADIOTHERAPY (CONCURRENT WITH EBRT) [Suspect]
     Dates: end: 20050121
  4. LOMOTIL [Concomitant]
  5. VICODIN [Concomitant]

REACTIONS (10)
  - ANAEMIA [None]
  - BODY TEMPERATURE INCREASED [None]
  - DEHYDRATION [None]
  - FATIGUE [None]
  - LEUKOPENIA [None]
  - NAUSEA [None]
  - NEUTROPENIA [None]
  - RADIATION SKIN INJURY [None]
  - THROMBOCYTOPENIA [None]
  - VOMITING [None]
